FAERS Safety Report 6438524-8 (Version None)
Quarter: 2009Q4

REPORT INFORMATION
  Report Type: 
  Country: None (occurrence: None)
  Receive Date: 20091110
  Receipt Date: 20091028
  Transmission Date: 20100525
  Serious: Yes (Other)
  Sender: FDA-Public Use
  Company Number: UKP09000184

PATIENT
  Age: 77 Year
  Sex: Female

DRUGS (1)
  1. ACTONEL [Suspect]
     Dosage: 35 MG, 1 /WEEK, ORAL
     Route: 048
     Dates: start: 20090409, end: 20091027

REACTIONS (1)
  - MALAISE [None]
